FAERS Safety Report 18576284 (Version 4)
Quarter: 2021Q1

REPORT INFORMATION
  Report Type: Report from Study
  Country: CO (occurrence: CO)
  Receive Date: 20201203
  Receipt Date: 20210120
  Transmission Date: 20210419
  Serious: Yes (Other)
  Sender: FDA-Public Use
  Company Number: CO-TAKEDA-2020TUS054510

PATIENT
  Age: 66 Year
  Sex: Male
  Weight: 74 kg

DRUGS (1)
  1. VEDOLIZUMAB [Suspect]
     Active Substance: VEDOLIZUMAB
     Indication: CROHN^S DISEASE
     Dosage: 300 MILLIGRAM, Q4WEEKS
     Route: 042
     Dates: start: 20181108

REACTIONS (8)
  - COVID-19 [Recovering/Resolving]
  - Pyrexia [Unknown]
  - Product dose omission issue [Unknown]
  - Muscle rigidity [Not Recovered/Not Resolved]
  - Oedema [Not Recovered/Not Resolved]
  - Secretion discharge [Recovering/Resolving]
  - Inflammation [Not Recovered/Not Resolved]
  - Off label use [Unknown]

NARRATIVE: CASE EVENT DATE: 20181108
